FAERS Safety Report 5425007-7 (Version None)
Quarter: 2007Q3

REPORT INFORMATION
  Report Type: 
  Country: None (occurrence: None)
  Receive Date: 20070822
  Receipt Date: 20070808
  Transmission Date: 20080115
  Serious: Yes (Life-Threatening, Hospitalization, Other)
  Sender: FDA-Public Use
  Company Number: MC200700499

PATIENT
  Age: 61 Year
  Sex: Female
  Weight: 82 kg

DRUGS (17)
  1. ANGIOMAX [Suspect]
     Indication: PERCUTANEOUS CORONARY INTERVENTION
     Dosage: 61.5 MG, BOLUS, IV BOLUS; 28 ML, HR, INTRAVENOUS
     Route: 040
     Dates: start: 20070622, end: 20070622
  2. ANGIOMAX [Suspect]
     Indication: PERCUTANEOUS CORONARY INTERVENTION
     Dosage: 61.5 MG, BOLUS, IV BOLUS; 28 ML, HR, INTRAVENOUS
     Route: 040
     Dates: start: 20070622, end: 20070622
  3. ATROPINE [Suspect]
     Dosage: 1 MG, SINGLE, INTRAVENOUS
     Route: 042
     Dates: start: 20070622, end: 20070622
  4. EPINEPHRINE [Suspect]
     Dosage: 1 MG, SINGLE, INTRAVENOUS
     Route: 042
     Dates: start: 20070622, end: 20070622
  5. HEPARIN [Suspect]
     Dosage: 5000 UT, SINGLE, INTRAVENOUS
     Route: 042
     Dates: start: 20070622, end: 20070622
  6. INTEGRILIN [Suspect]
     Dosage: 14.6 MG, BOLUS, INTRAVENOUS13 ML, HR, INTRAVENOUS
     Route: 042
     Dates: start: 20070622, end: 20070622
  7. INTEGRILIN [Suspect]
     Dosage: 14.6 MG, BOLUS, INTRAVENOUS13 ML, HR, INTRAVENOUS
     Route: 042
     Dates: start: 20070622, end: 20070622
  8. ASPIRIN [Concomitant]
  9. BETA BLOCKING AGENTS [Concomitant]
  10. MIDAZOLAM HCL [Concomitant]
  11. LIDOCAINE [Concomitant]
  12. NITROGLYCERIN [Concomitant]
  13. VALSARTAN [Concomitant]
  14. SIMVASTATIN [Concomitant]
  15. PEPCID /00706001/ (FAMOTIDINE) [Concomitant]
  16. NOVOLOG [Concomitant]
  17. LANTUS [Concomitant]

REACTIONS (11)
  - ARTERIAL THROMBOSIS [None]
  - BLOOD PRESSURE FLUCTUATION [None]
  - CARDIAC ARREST [None]
  - CARDIOGENIC SHOCK [None]
  - COAGULATION TIME ABNORMAL [None]
  - CORONARY ARTERY THROMBOSIS [None]
  - DRUG INEFFECTIVE [None]
  - DRUG LEVEL BELOW THERAPEUTIC [None]
  - SUPRAVENTRICULAR TACHYCARDIA [None]
  - VENTRICULAR FIBRILLATION [None]
  - VOMITING [None]
